FAERS Safety Report 9164445 (Version 2)
Quarter: 2013Q3

REPORT INFORMATION
  Report Type: Spontaneous
  Country: US (occurrence: None)
  Receive Date: 20130221
  Receipt Date: 20130815
  Transmission Date: 20140515
  Serious: Yes (Other)
  Sender: FDA-Public Use
  Company Number: ADR-2012-01131

PATIENT
  Sex: Female

DRUGS (1)
  1. LIORESAL [Suspect]
     Indication: MUSCLE SPASTICITY
     Dosage: 999MCG/DAY

REACTIONS (8)
  - Back pain [None]
  - Muscle spasms [None]
  - Disease recurrence [None]
  - Muscle spasticity [None]
  - No therapeutic response [None]
  - Scoliosis [None]
  - Device breakage [None]
  - Muscle spasticity [None]
